FAERS Safety Report 10487875 (Version 5)
Quarter: 2015Q1

REPORT INFORMATION
  Report Type: Report from Study
  Country: KR (occurrence: KR)
  Receive Date: 20141001
  Receipt Date: 20150127
  Transmission Date: 20150720
  Serious: Yes (Hospitalization)
  Sender: FDA-Public Use
  Company Number: KR-009507513-1407KOR012060

PATIENT
  Age: 44 Year
  Sex: Male
  Weight: 50 kg

DRUGS (16)
  1. COUGH SYRUP (AMMONIUM CHLORIDE (+) CHLORPHENIRAMINE MALEATE (+) DEXTRO [Concomitant]
     Indication: BRONCHIOLITIS
     Dosage: 20 MG, TID
     Route: 048
     Dates: start: 20140612
  2. NEURONTIN [Concomitant]
     Active Substance: GABAPENTIN
     Indication: NEUROPATHY PERIPHERAL
     Dosage: 300 MG, QD
     Route: 048
     Dates: start: 20131203
  3. PEMBROLIZUMAB. [Suspect]
     Active Substance: PEMBROLIZUMAB
     Indication: HEAD AND NECK CANCER
     Dosage: 10 MG/KG, QOW
     Route: 042
     Dates: start: 20140708, end: 20140708
  4. MORPHINE HYDROCHLORIDE [Concomitant]
     Active Substance: MORPHINE HYDROCHLORIDE
     Indication: FACIAL PAIN
     Dosage: 200 MG, QD FOMULATIONN AMPULE
     Route: 042
     Dates: start: 20140622
  5. POLYBUTINE [Concomitant]
     Indication: BRONCHIOLITIS
     Dosage: 15 MG, TID
     Route: 048
     Dates: start: 20140612
  6. MIACALCIC [Concomitant]
     Active Substance: CALCITONIN SALMON
     Indication: HYPERCALCAEMIA
     Dosage: 300 UNITS, QD FORMULATION AMPULE
     Route: 042
     Dates: start: 20140707, end: 20140710
  7. FLASINYL [Concomitant]
     Indication: WOUND INFECTION
     Dosage: 500 MG, TID
     Route: 048
     Dates: start: 20140612
  8. LEUCOSTIM [Concomitant]
     Active Substance: FILGRASTIM
     Indication: NEUTROPENIA
     Dosage: 300MICROGRAM, ONCE
     Route: 058
     Dates: start: 20140717, end: 20140717
  9. LYRICA [Concomitant]
     Active Substance: PREGABALIN
     Indication: NEUROPATHY PERIPHERAL
     Dosage: 300 MG, QD
     Route: 048
     Dates: start: 20140525
  10. PEMBROLIZUMAB. [Suspect]
     Active Substance: PEMBROLIZUMAB
     Dosage: 10 MG/KG, QOW
     Route: 042
     Dates: start: 20140729, end: 20140911
  11. DUROGESIC [Concomitant]
     Active Substance: FENTANYL
     Indication: FACIAL PAIN
     Dosage: 100 MICROGRAM/HOUR, FREQUENCY OTHER
     Route: 062
     Dates: start: 20140612
  12. MEPERIDINE HYDROCHLORIDE. [Concomitant]
     Active Substance: MEPERIDINE HYDROCHLORIDE
     Indication: FACIAL PAIN
     Dosage: UNK, ONCE
     Route: 030
     Dates: start: 20140719, end: 20140719
  13. RHINATHIOL [Concomitant]
     Indication: BRONCHIOLITIS
     Dosage: 500 MG, TID
     Route: 048
     Dates: start: 20140612
  14. TAZOPERAN [Concomitant]
     Indication: WOUND INFECTION
     Dosage: 6.75 MG BID, FORMULATION AMPULE
     Route: 042
     Dates: start: 20140620, end: 20140728
  15. MORPHINE SULFATE. [Concomitant]
     Active Substance: MORPHINE SULFATE
     Indication: FACIAL PAIN
     Dosage: 15 MG, QD FORMULATION AMPULE
     Route: 042
     Dates: start: 20140708, end: 20140708
  16. TAZOCIN [Concomitant]
     Active Substance: PIPERACILLIN SODIUM\TAZOBACTAM SODIUM
     Indication: WOUND INFECTION
     Dosage: 400 MG, QD
     Route: 042
     Dates: start: 20140707, end: 20140717

REACTIONS (1)
  - Neutropenia [Recovered/Resolved]

NARRATIVE: CASE EVENT DATE: 20140721
